FAERS Safety Report 9018547 (Version 1)
Quarter: 2013Q1

REPORT INFORMATION
  Report Type: Spontaneous
  Country: US (occurrence: None)
  Receive Date: 20130111
  Receipt Date: 20130111
  Transmission Date: 20140127
  Serious: No
  Sender: FDA-Public Use
  Company Number: None

PATIENT
  Age: 56 Year
  Sex: Female

DRUGS (6)
  1. ASPARAGINASE [Suspect]
     Dates: start: 20070415, end: 20070502
  2. PEGASPARGASE [Suspect]
     Dates: start: 20070419, end: 20070419
  3. BACTRIM [Concomitant]
  4. CEFTRIAXONE [Concomitant]
  5. LEVAQUIN [Concomitant]
  6. ALLOPURINOL [Concomitant]

REACTIONS (7)
  - Drug-induced liver injury [None]
  - Hypofibrinogenaemia [None]
  - Fatigue [None]
  - Asthenia [None]
  - Hepatic steatosis [None]
  - Cholestasis [None]
  - Nausea [None]
